FAERS Safety Report 21848753 (Version 1)
Quarter: 2023Q1

REPORT INFORMATION
  Report Type: Spontaneous
  Country: US (occurrence: US)
  Receive Date: 20230111
  Receipt Date: 20230111
  Transmission Date: 20230418
  Serious: Yes (Other)
  Sender: FDA-Public Use
  Company Number: US-BAYER-2023A002835

PATIENT
  Age: 51 Year
  Sex: Female

DRUGS (1)
  1. CLIMARA PRO [Suspect]
     Active Substance: ESTRADIOL\LEVONORGESTREL
     Dosage: 0.045/.015 MG
     Route: 062

REACTIONS (3)
  - Device breakage [None]
  - Device adhesion issue [None]
  - Wrong technique in product usage process [None]
